FAERS Safety Report 12968021 (Version 1)
Quarter: 2016Q4

REPORT INFORMATION
  Report Type: Spontaneous
  Country: US (occurrence: US)
  Receive Date: 20161123
  Receipt Date: 20161123
  Transmission Date: 20170207
  Serious: Yes (Hospitalization)
  Sender: FDA-Public Use
  Company Number: None

PATIENT
  Age: 43 Year
  Sex: Male
  Weight: 83.25 kg

DRUGS (6)
  1. MELOXICAM 15MG [Suspect]
     Active Substance: MELOXICAM
  2. SYNTHROID [Concomitant]
     Active Substance: LEVOTHYROXINE SODIUM
  3. METAXALONE. [Suspect]
     Active Substance: METAXALONE
     Indication: PAIN IN EXTREMITY
     Route: 048
     Dates: start: 20161104, end: 20161105
  4. METAXALONE. [Suspect]
     Active Substance: METAXALONE
     Indication: MYALGIA
     Route: 048
     Dates: start: 20161104, end: 20161105
  5. MULTIVITAMIN [Concomitant]
     Active Substance: VITAMINS
  6. VITAMIN D [Concomitant]
     Active Substance: CHOLECALCIFEROL

REACTIONS (8)
  - Rash [None]
  - Dyspnoea [None]
  - Swelling face [None]
  - Pleural effusion [None]
  - Hypotension [None]
  - Abdominal pain [None]
  - Vomiting [None]
  - Pneumonia [None]

NARRATIVE: CASE EVENT DATE: 20161105
